FAERS Safety Report 9506710 (Version 6)
Quarter: 2015Q1

REPORT INFORMATION
  Report Type: Report from Study
  Country: US (occurrence: US)
  Receive Date: 20130908
  Receipt Date: 20150312
  Transmission Date: 20150721
  Serious: Yes (Hospitalization)
  Sender: FDA-Public Use
  Company Number: US-SANOFI-AVENTIS-2013SA088859

PATIENT
  Age: 61 Year
  Sex: Female
  Weight: 54.4 kg

DRUGS (14)
  1. AUBAGIO [Suspect]
     Active Substance: TERIFLUNOMIDE
     Indication: MULTIPLE SCLEROSIS
     Route: 065
  2. AUBAGIO [Suspect]
     Active Substance: TERIFLUNOMIDE
     Indication: MULTIPLE SCLEROSIS
     Route: 048
     Dates: start: 20120301
  3. AUBAGIO [Suspect]
     Active Substance: TERIFLUNOMIDE
     Indication: MULTIPLE SCLEROSIS
     Route: 048
     Dates: start: 20130302
  4. CLARITIN [Concomitant]
     Active Substance: LORATADINE
     Indication: HYPERSENSITIVITY
  5. COPAXONE [Concomitant]
     Active Substance: GLATIRAMER ACETATE
  6. PINDOLOL. [Concomitant]
     Active Substance: PINDOLOL
     Indication: SUPRAVENTRICULAR TACHYCARDIA
  7. DIGOXIN. [Concomitant]
     Active Substance: DIGOXIN
     Indication: ATRIAL FIBRILLATION
  8. AUBAGIO [Suspect]
     Active Substance: TERIFLUNOMIDE
     Indication: CHOLECYSTITIS
     Route: 048
     Dates: start: 20120301
  9. AUBAGIO [Suspect]
     Active Substance: TERIFLUNOMIDE
     Indication: CHOLECYSTITIS
     Route: 048
     Dates: start: 20130302
  10. PINDOLOL. [Concomitant]
     Active Substance: PINDOLOL
     Indication: ATRIAL FIBRILLATION
  11. PRILOSEC [Concomitant]
     Active Substance: OMEPRAZOLE MAGNESIUM
     Indication: ULCER
  12. AUBAGIO [Suspect]
     Active Substance: TERIFLUNOMIDE
     Indication: CHOLECYSTITIS
     Route: 065
  13. ASA [Concomitant]
     Active Substance: ASPIRIN
     Indication: ATRIAL FIBRILLATION
  14. PRILOSEC [Concomitant]
     Active Substance: OMEPRAZOLE MAGNESIUM
     Indication: GASTROOESOPHAGEAL REFLUX DISEASE

REACTIONS (6)
  - Liver function test abnormal [Recovered/Resolved]
  - Cholelithiasis [Recovered/Resolved]
  - Cholecystitis [Unknown]
  - Unevaluable event [Unknown]
  - Visual acuity reduced [Unknown]
  - Drug ineffective [Unknown]

NARRATIVE: CASE EVENT DATE: 20130601
